FAERS Safety Report 6889926-7 (Version None)
Quarter: 2010Q3

REPORT INFORMATION
  Report Type: 
  Country: None (occurrence: None)
  Receive Date: 20100730
  Receipt Date: 20080603
  Transmission Date: 20110219
  Serious: No
  Sender: FDA-Public Use
  Company Number: US-PFIZER INC-2008047896

PATIENT
  Sex: Female
  Weight: 63.636 kg

DRUGS (6)
  1. LIPITOR [Suspect]
     Indication: BLOOD CHOLESTEROL INCREASED
  2. ACTONEL [Concomitant]
  3. CLONAZEPAM [Concomitant]
  4. TRILEPTAL [Concomitant]
  5. PAXIL [Concomitant]
  6. VITAMINS [Concomitant]

REACTIONS (2)
  - MUSCLE SPASMS [None]
  - PAIN [None]
